FAERS Safety Report 7162654-9 (Version None)
Quarter: 2010Q4

REPORT INFORMATION
  Report Type: 
  Country: None (occurrence: None)
  Receive Date: 20101215
  Receipt Date: 20091204
  Transmission Date: 20110411
  Serious: Yes (Hospitalization)
  Sender: FDA-Public Use
  Company Number: BE-PFIZER INC-2009303568

PATIENT
  Age: 85 Year
  Sex: Female

DRUGS (6)
  1. LYRICA [Suspect]
     Indication: TRIGEMINAL NEURALGIA
     Dosage: 75 MG, 2X/DAY
     Route: 048
     Dates: start: 20090501, end: 20090601
  2. TEGRETOL [Concomitant]
     Indication: TRIGEMINAL NEURALGIA
     Dosage: 100 MG, 2X/DAY
     Dates: start: 20080901, end: 20090507
  3. SINTROM [Concomitant]
     Dosage: UNK
     Route: 048
  4. AMLOR [Concomitant]
     Dosage: 5 MG, 1X/DAY
     Route: 048
  5. COVERSYL [Concomitant]
     Dosage: 5 MG, 1X/DAY
     Route: 048
  6. REDOXON [Concomitant]
     Dosage: 1 G, 1X/DAY

REACTIONS (1)
  - SINUS BRADYCARDIA [None]
